FAERS Safety Report 7638895-0 (Version None)
Quarter: 2011Q3

REPORT INFORMATION
  Report Type: 
  Country: None (occurrence: None)
  Receive Date: 20110721
  Receipt Date: 20110712
  Transmission Date: 20111222
  Serious: Yes (Other)
  Sender: FDA-Public Use
  Company Number: A0914367A

PATIENT
  Age: 66 Year
  Sex: Male

DRUGS (1)
  1. ASPIRIN + CAFFEINE + PARACETAMOL (FORMULATION UNKNOWN) (ACETAMINOPHEN [Suspect]
     Indication: PRODUCT USED FOR UNKNOWN INDICATION

REACTIONS (4)
  - LIP EROSION [None]
  - DRUG DEPENDENCE [None]
  - MUCOSAL EROSION [None]
  - TOOTH EROSION [None]
